FAERS Safety Report 21775622 (Version 2)
Quarter: 2023Q1

REPORT INFORMATION
  Report Type: Report from Study
  Country: US (occurrence: US)
  Receive Date: 20221226
  Receipt Date: 20230201
  Transmission Date: 20230417
  Serious: Yes (Death, Other)
  Sender: FDA-Public Use
  Company Number: US-ACADIA PHARMACEUTICALS INC.-ACA-2022-PIM-004411

PATIENT
  Age: 84 Year
  Sex: Male

DRUGS (15)
  1. NUPLAZID [Suspect]
     Active Substance: PIMAVANSERIN TARTRATE
     Indication: Parkinson^s disease
     Dosage: 34 MILLIGRAM, QD
     Route: 048
     Dates: start: 202005
  2. SILDENAFIL CITRATE [Concomitant]
     Active Substance: SILDENAFIL CITRATE
  3. LEVOTHYROXINE [Concomitant]
     Active Substance: LEVOTHYROXINE
     Dosage: 25 MCG, DAILY
     Route: 048
  4. SEROQUEL [Concomitant]
     Active Substance: QUETIAPINE FUMARATE
     Dosage: 25MG, 2 TIMES A DAY
     Route: 048
  5. MINERALS\VITAMINS [Concomitant]
     Active Substance: MINERALS\VITAMINS
     Dosage: SOFTGEL
  6. CARBIDOPA [Concomitant]
     Active Substance: CARBIDOPA
  7. RIVASTIGMINE [Concomitant]
     Active Substance: RIVASTIGMINE
     Dosage: 9.5 MG/24 HR TRANSDERMAL FILIM EXTENDED RELAEASE, DAILY
     Route: 061
  8. ALPRAZOLAM [Concomitant]
     Active Substance: ALPRAZOLAM
  9. LATANOPROST [Concomitant]
     Active Substance: LATANOPROST
     Dosage: 0.005%, 1 DROP BOTH EYES, EVERY EVENING
  10. ACETAMINOPHEN [Concomitant]
     Active Substance: ACETAMINOPHEN
     Dosage: 325 MILLIGRAM, EVERY 6 HOURS PRN
     Route: 048
  11. CARBIDOPA\LEVODOPA [Concomitant]
     Active Substance: CARBIDOPA\LEVODOPA
     Dosage: 25-100 MG ORAL TABLET, 0.5 TABLET, ORAL 3 TIMES A DAY BEFORE MEALS
     Route: 048
  12. MILK OF MAGNESIA [Concomitant]
     Active Substance: MAGNESIUM HYDROXIDE
     Dosage: 8%, EVERY DAY AT BED TIME, PRN
     Route: 048
  13. SENNA PLUS [Concomitant]
     Active Substance: DOCUSATE SODIUM\SENNOSIDES\SENNOSIDES A AND B
     Dosage: 50 MG-8.6 MG, 2 TABLET, EVERY DAY AT BEDTIME
     Route: 048
  14. MELATONIN [Concomitant]
     Active Substance: MELATONIN
     Dosage: UNK
     Dates: start: 2020
  15. EXELON [Concomitant]
     Active Substance: RIVASTIGMINE TARTRATE
     Indication: Hallucination
     Dosage: UNK
     Dates: start: 202004

REACTIONS (1)
  - Death [Fatal]

NARRATIVE: CASE EVENT DATE: 20221103
